FAERS Safety Report 24229775 (Version 1)
Quarter: 2024Q3

REPORT INFORMATION
  Report Type: Spontaneous
  Country: LB (occurrence: LB)
  Receive Date: 20240820
  Receipt Date: 20240820
  Transmission Date: 20241016
  Serious: Yes (Hospitalization, Other)
  Sender: AMGEN
  Company Number: LB-AMGEN-LBNSP2024162465

PATIENT
  Age: 43 Year
  Sex: Male

DRUGS (1)
  1. ADALIMUMAB [Suspect]
     Active Substance: ADALIMUMAB
     Indication: Crohn^s disease
     Dosage: UNK
     Route: 065

REACTIONS (6)
  - HIV infection [Unknown]
  - Castleman^s disease [Unknown]
  - Tuberculosis [Unknown]
  - Toxoplasmosis [Unknown]
  - Cytomegalovirus infection [Unknown]
  - Human herpesvirus 8 infection [Unknown]
